FAERS Safety Report 16355273 (Version 1)
Quarter: 2019Q2

REPORT INFORMATION
  Report Type: Report from Study
  Country: None (occurrence: AR)
  Receive Date: 20190525
  Receipt Date: 20190525
  Transmission Date: 20190711
  Serious: Yes (Other)
  Sender: FDA-Public Use
  Company Number: AR-ABBVIE-19K-007-2797381-00

PATIENT
  Sex: Male

DRUGS (1)
  1. HUMIRA [Suspect]
     Active Substance: ADALIMUMAB
     Indication: RHEUMATOID ARTHRITIS
     Route: 058
     Dates: start: 20190302

REACTIONS (2)
  - Pain in extremity [Not Recovered/Not Resolved]
  - Scleritis [Not Recovered/Not Resolved]

NARRATIVE: CASE EVENT DATE: 2019
